FAERS Safety Report 23342226 (Version 1)
Quarter: 2023Q4

REPORT INFORMATION
  Report Type: Spontaneous
  Country: CN (occurrence: CN)
  Receive Date: 20231227
  Receipt Date: 20231227
  Transmission Date: 20240110
  Serious: Yes (Life-Threatening)
  Sender: FDA-Public Use
  Company Number: CN-BAYER-2023A184774

PATIENT
  Age: 51 Year
  Sex: Male
  Weight: 72 kg

DRUGS (2)
  1. ULTRAVIST [Suspect]
     Active Substance: IOPROMIDE
     Indication: Computerised tomogram heart
     Dosage: 100 ML, ONCE
     Route: 041
     Dates: start: 20231213, end: 20231213
  2. ULTRAVIST [Suspect]
     Active Substance: IOPROMIDE
     Indication: Coronary artery stenosis

REACTIONS (10)
  - Anaphylactic shock [Recovered/Resolved]
  - Syncope [Recovered/Resolved]
  - Depressed level of consciousness [Recovered/Resolved]
  - Rash erythematous [Recovered/Resolved]
  - Hypoaesthesia [Recovered/Resolved]
  - Somnolence [Recovered/Resolved]
  - Blood pressure decreased [Recovered/Resolved]
  - Heart rate decreased [Recovered/Resolved]
  - Respiratory rate increased [Recovered/Resolved]
  - Incorrect drug administration rate [None]

NARRATIVE: CASE EVENT DATE: 20231213
